FAERS Safety Report 6344217-8 (Version None)
Quarter: 2009Q3

REPORT INFORMATION
  Report Type: 
  Country: None (occurrence: None)
  Receive Date: 20090903
  Receipt Date: 20090903
  Transmission Date: 20100115
  Serious: Yes (Hospitalization, Other)
  Sender: FDA-Public Use
  Company Number: None

PATIENT
  Age: 37 Year
  Sex: Female
  Weight: 113.3993 kg

DRUGS (2)
  1. PREDNISONE TAB [Suspect]
     Indication: COLITIS ULCERATIVE
     Dates: start: 20051112, end: 20081222
  2. PREDNISONE TAB [Suspect]
     Indication: SURGERY
     Dates: start: 20051112, end: 20081222

REACTIONS (5)
  - BONE GRAFT [None]
  - CHONDROPATHY [None]
  - JOINT INJURY [None]
  - JOINT SWELLING [None]
  - OSTEONECROSIS [None]
